FAERS Safety Report 10920001 (Version 8)
Quarter: 2016Q2

REPORT INFORMATION
  Report Type: Report from Study
  Country: CA (occurrence: CA)
  Receive Date: 20150317
  Receipt Date: 20160505
  Transmission Date: 20160815
  Serious: Yes (Disabling, Other)
  Sender: FDA-Public Use
  Company Number: CA-AMGEN-CANSL2015012259

PATIENT
  Age: 67 Year
  Sex: Female
  Weight: 100 kg

DRUGS (16)
  1. NAPROXEN. [Concomitant]
     Active Substance: NAPROXEN
     Dosage: 100 MG, UNK
     Route: 048
  2. OMEGA 3 [Concomitant]
     Active Substance: OMEGA-3 FATTY ACIDS
     Dosage: UNK
  3. ACIDOPHILUS [Concomitant]
     Active Substance: LACTOBACILLUS ACIDOPHILUS
     Dosage: UNK
  4. THYROXIN [Concomitant]
     Active Substance: LEVOTHYROXINE
     Dosage: 0.15 MG, QD
  5. VALSARTAN. [Concomitant]
     Active Substance: VALSARTAN
     Indication: HYPERTENSION
     Dosage: 80 MG, OD
     Route: 048
     Dates: start: 20160216
  6. SYNTHROID [Concomitant]
     Active Substance: LEVOTHYROXINE SODIUM
     Indication: HYPOTHYROIDISM
     Dosage: 0.113 UNK, OD
     Route: 048
  7. NAPROXEN. [Concomitant]
     Active Substance: NAPROXEN
     Indication: RHEUMATOID ARTHRITIS
     Dosage: 500 MG, BID AS NECESSARY
     Route: 048
     Dates: start: 20141001
  8. ACIDOPHILIS [Concomitant]
     Active Substance: LACTOBACILLUS ACIDOPHILUS
     Dosage: UNK
  9. VITAMIN A [Concomitant]
     Active Substance: VITAMIN A
     Dosage: UNK
  10. ENBREL [Suspect]
     Active Substance: ETANERCEPT
     Dosage: UNK
     Route: 065
  11. ELTROXIN [Concomitant]
     Active Substance: LEVOTHYROXINE
     Dosage: 0.15 MG, QD
  12. NAPROXEN. [Concomitant]
     Active Substance: NAPROXEN
     Dosage: 250 MG, BID
     Route: 048
     Dates: start: 1998
  13. PANTOPRAZOLE [Concomitant]
     Active Substance: PANTOPRAZOLE SODIUM
     Dosage: 40 MG, QD
     Route: 048
  14. ENBREL [Suspect]
     Active Substance: ETANERCEPT
     Indication: RHEUMATOID ARTHRITIS
     Dosage: 50 MG, WEEKLY
     Route: 058
     Dates: start: 201501, end: 20160401
  15. WATER. [Suspect]
     Active Substance: WATER
     Indication: JOINT SWELLING
     Dosage: UNK
     Route: 065
  16. MAGNESIUM SULPHATE [Concomitant]
     Active Substance: MAGNESIUM SULFATE
     Dosage: UNK

REACTIONS (50)
  - Abasia [Recovered/Resolved]
  - Groin pain [Not Recovered/Not Resolved]
  - Night sweats [Recovering/Resolving]
  - Synovial cyst [Not Recovered/Not Resolved]
  - Insomnia [Unknown]
  - Exostosis [Not Recovered/Not Resolved]
  - Pain [Unknown]
  - Migraine [Not Recovered/Not Resolved]
  - Injection site rash [Not Recovered/Not Resolved]
  - Injection site erythema [Unknown]
  - Nasopharyngitis [Not Recovered/Not Resolved]
  - Mobility decreased [Not Recovered/Not Resolved]
  - Muscular weakness [Not Recovered/Not Resolved]
  - Inflammation [Unknown]
  - Bladder disorder [Not Recovered/Not Resolved]
  - Pelvic pain [Not Recovered/Not Resolved]
  - Sinusitis [Recovering/Resolving]
  - Injection site pruritus [Unknown]
  - Oedema peripheral [Unknown]
  - Uveitis [Unknown]
  - Oropharyngeal pain [Recovering/Resolving]
  - Costochondritis [Unknown]
  - Headache [Unknown]
  - Head discomfort [Not Recovered/Not Resolved]
  - Gait disturbance [Not Recovered/Not Resolved]
  - Injection site swelling [Not Recovered/Not Resolved]
  - Injection site pain [Not Recovered/Not Resolved]
  - Therapeutic response decreased [Not Recovered/Not Resolved]
  - Pain in extremity [Unknown]
  - Blindness [Recovered/Resolved]
  - Somnolence [Unknown]
  - Micturition disorder [Not Recovered/Not Resolved]
  - Arthralgia [Unknown]
  - Activities of daily living impaired [Not Recovered/Not Resolved]
  - Peripheral swelling [Recovering/Resolving]
  - Fibromyalgia [Not Recovered/Not Resolved]
  - Diarrhoea [Recovered/Resolved]
  - Fatigue [Unknown]
  - Abdominal discomfort [Recovered/Resolved]
  - Arthritis [Not Recovered/Not Resolved]
  - Dysgeusia [Not Recovered/Not Resolved]
  - Peripheral venous disease [Unknown]
  - Joint swelling [Unknown]
  - Productive cough [Recovering/Resolving]
  - Injection site reaction [Not Recovered/Not Resolved]
  - Iritis [Recovering/Resolving]
  - Tendonitis [Not Recovered/Not Resolved]
  - Nausea [Unknown]
  - Tremor [Not Recovered/Not Resolved]
  - Speech disorder [Not Recovered/Not Resolved]

NARRATIVE: CASE EVENT DATE: 2015
